FAERS Safety Report 7669142-1 (Version None)
Quarter: 2011Q3

REPORT INFORMATION
  Report Type: 
  Country: None (occurrence: None)
  Receive Date: 20110808
  Receipt Date: 20110726
  Transmission Date: 20111222
  Serious: Yes (Hospitalization, Other)
  Sender: FDA-Public Use
  Company Number: PHHY2011US40502

PATIENT
  Sex: Male

DRUGS (14)
  1. EXJADE [Suspect]
     Indication: IRON METABOLISM DISORDER
     Dosage: 375 MG, QD
     Route: 048
  2. METOPROLOL TARTRATE [Concomitant]
     Dosage: 50 MG, BID
  3. OMNICEF [Concomitant]
     Dosage: 300 MG, BID
  4. NITROSTAT [Concomitant]
     Dosage: UNK UKN, UNK
  5. LEVEMIR [Concomitant]
     Dosage: UNK UKN, UNK
  6. LANTUS [Concomitant]
     Dosage: 16 U, AT BEDTIME
  7. GLYBURIDE [Concomitant]
     Dosage: 5 MG,  WITH BREAKFAST
  8. LANTUS [Concomitant]
     Dosage: 10 U, UNK
  9. EXJADE [Suspect]
     Indication: NEOPLASM
  10. METOPROLOL TARTRATE [Concomitant]
     Dosage: 25 MG, BID
  11. LASIX [Concomitant]
     Dosage: UNK UKN, BID
     Route: 042
  12. LASIX [Concomitant]
     Dosage: 40 MG, QD, IN THE MORNING
  13. ASPIRIN [Concomitant]
     Dosage: 325 MG, UNK
  14. LANTUS [Concomitant]
     Dosage: 5 U, UNK

REACTIONS (17)
  - CARDIAC FAILURE CONGESTIVE [None]
  - HYPOGLYCAEMIA [None]
  - PYREXIA [None]
  - PNEUMONIA [None]
  - ALANINE AMINOTRANSFERASE INCREASED [None]
  - ASPARTATE AMINOTRANSFERASE INCREASED [None]
  - CYSTITIS [None]
  - ATELECTASIS [None]
  - BLOOD CREATININE INCREASED [None]
  - VENTRICULAR EXTRASYSTOLES [None]
  - CORONARY ARTERY DISEASE [None]
  - VENTRICULAR TACHYCARDIA [None]
  - CHILLS [None]
  - LIVER FUNCTION TEST ABNORMAL [None]
  - ASTHENIA [None]
  - ABASIA [None]
  - FATIGUE [None]
